FAERS Safety Report 23995853 (Version 4)
Quarter: 2024Q3

REPORT INFORMATION
  Report Type: Spontaneous
  Country: US (occurrence: US)
  Receive Date: 20240620
  Receipt Date: 20240920
  Transmission Date: 20241016
  Serious: No
  Sender: TEIKOKU
  Company Number: US-TPU-TPU-2024-00344

PATIENT
  Age: 61 Year
  Sex: Female

DRUGS (6)
  1. LIDOCAINE [Suspect]
     Active Substance: LIDOCAINE
     Indication: Pain
  2. LIDOCAINE [Suspect]
     Active Substance: LIDOCAINE
     Indication: Fibromyalgia
  3. LIDOCAINE [Suspect]
     Active Substance: LIDOCAINE
     Indication: Arthritis
  4. LIDOCAINE [Suspect]
     Active Substance: LIDOCAINE
     Indication: Lumbar radiculopathy
  5. LIDOCAINE [Suspect]
     Active Substance: LIDOCAINE
     Indication: Radiculopathy
  6. LIDODERM [Suspect]
     Active Substance: LIDOCAINE
     Dates: start: 1993

REACTIONS (16)
  - Neck surgery [Unknown]
  - Spinal operation [Unknown]
  - Limb injury [Unknown]
  - Limb operation [Not Recovered/Not Resolved]
  - Neck surgery [Unknown]
  - Spinal operation [Unknown]
  - Road traffic accident [Unknown]
  - Neovascular age-related macular degeneration [Not Recovered/Not Resolved]
  - Cognitive disorder [Not Recovered/Not Resolved]
  - Abdominal hernia [Not Recovered/Not Resolved]
  - Scar [Not Recovered/Not Resolved]
  - Drug ineffective for unapproved indication [Not Recovered/Not Resolved]
  - Dyslexia [Unknown]
  - Concussion [Unknown]
  - General physical condition [Unknown]
  - Tremor [Unknown]

NARRATIVE: CASE EVENT DATE: 20071101
